FAERS Safety Report 7569074-3 (Version None)
Quarter: 2011Q2

REPORT INFORMATION
  Report Type: 
  Country: None (occurrence: None)
  Receive Date: 20110623
  Receipt Date: 20110621
  Transmission Date: 20111010
  Serious: Yes (Hospitalization, Other)
  Sender: FDA-Public Use
  Company Number: US-AMGEN-USASP2011023092

PATIENT
  Age: 51 Year
  Sex: Female

DRUGS (3)
  1. CORTICOSTEROIDS [Concomitant]
     Indication: IDIOPATHIC THROMBOCYTOPENIC PURPURA
  2. COUMADIN [Concomitant]
  3. NPLATE [Suspect]
     Indication: IDIOPATHIC THROMBOCYTOPENIC PURPURA
     Dates: start: 20100324, end: 20100623

REACTIONS (6)
  - DEEP VEIN THROMBOSIS [None]
  - THROMBOSIS [None]
  - SINUS DISORDER [None]
  - ARTHRITIS [None]
  - PYREXIA [None]
  - PAIN [None]
